FAERS Safety Report 10690732 (Version 1)
Quarter: 2015Q1

REPORT INFORMATION
  Report Type: Spontaneous
  Country: GB (occurrence: GB)
  Receive Date: 20150105
  Receipt Date: 20150105
  Transmission Date: 20150720
  Serious: Yes (Disabling)
  Sender: FDA-Public Use
  Company Number: GB-TEVA-531773ISR

PATIENT
  Age: 45 Year
  Sex: Male

DRUGS (5)
  1. SUBUTEX [Concomitant]
     Active Substance: BUPRENORPHINE HYDROCHLORIDE
  2. DIAZEPAM. [Concomitant]
     Active Substance: DIAZEPAM
     Dosage: 9 MILLIGRAM DAILY; AT NIGHT
  3. EPILIM [Concomitant]
     Active Substance: VALPROATE SODIUM
     Dosage: 400 MILLIGRAM DAILY;
  4. QUETIAPINE [Concomitant]
     Active Substance: QUETIAPINE
     Dosage: 800 MILLIGRAM DAILY; AT NIGHT
  5. LAMOTRIGINE. [Suspect]
     Active Substance: LAMOTRIGINE
     Indication: BIPOLAR I DISORDER
     Route: 048
     Dates: start: 20140723, end: 20140730

REACTIONS (7)
  - Psychomotor hyperactivity [Recovered/Resolved]
  - Tachyphrenia [Recovered/Resolved]
  - Anger [Recovered/Resolved]
  - Paranoia [Recovered/Resolved]
  - Insomnia [Recovered/Resolved]
  - Compulsive shopping [Recovered/Resolved]
  - Hypomania [Recovered/Resolved]

NARRATIVE: CASE EVENT DATE: 20140726
